FAERS Safety Report 9028696 (Version 1)
Quarter: 2013Q1

REPORT INFORMATION
  Report Type: Spontaneous
  Country: US (occurrence: US)
  Receive Date: 20130124
  Receipt Date: 20130124
  Transmission Date: 20140127
  Serious: Yes (Hospitalization, Other)
  Sender: FDA-Public Use
  Company Number: US-SANOFI-AVENTIS-2013SA003007

PATIENT
  Age: 82 Year
  Sex: Male
  Weight: 136.07 kg

DRUGS (2)
  1. PLAVIX [Suspect]
     Route: 048
  2. ASPIRIN [Suspect]

REACTIONS (3)
  - Fall [Unknown]
  - Cerebrovascular accident [Unknown]
  - Periorbital contusion [Unknown]
